FAERS Safety Report 6497945-8 (Version None)
Quarter: 2009Q4

REPORT INFORMATION
  Report Type: 
  Country: None (occurrence: None)
  Receive Date: 20091215
  Receipt Date: 20091209
  Transmission Date: 20100525
  Serious: Yes (Hospitalization)
  Sender: FDA-Public Use
  Company Number: AU-ROCHE-633219

PATIENT
  Sex: Male
  Weight: 112.2 kg

DRUGS (13)
  1. BLINDED BEVACIZUMAB [Suspect]
     Indication: DIFFUSE LARGE B-CELL LYMPHOMA
     Dosage: DOSE BLINDED.DATE OF LAST DOSE PRIOR TO SAE: 06 MAY 2009
     Route: 042
     Dates: start: 20081209
  2. RITUXIMAB [Suspect]
     Indication: DIFFUSE LARGE B-CELL LYMPHOMA
     Dosage: DATE OF LAST DOSE PRIOR TO SAE: 06 MAY 2009
     Route: 042
     Dates: start: 20081210
  3. CYCLOPHOSPHAMIDE [Suspect]
     Indication: DIFFUSE LARGE B-CELL LYMPHOMA
     Dosage: DATE OF LAST DOSE PRIOR TO SAE: 06 MAY 2009
     Route: 042
     Dates: start: 20081210
  4. DOXORUBICIN [Suspect]
     Indication: DIFFUSE LARGE B-CELL LYMPHOMA
     Dosage: DATE OF LAST DOSE PRIOR TO SAE: 06 MAY 2009
     Route: 042
     Dates: start: 20081210
  5. VINCRISTINE [Suspect]
     Indication: DIFFUSE LARGE B-CELL LYMPHOMA
     Dosage: DATE OF LAST DOSE PRIOR TO SAE: 06 MAY 2009
     Route: 042
     Dates: start: 20081210
  6. PREDNISOLONE [Suspect]
     Indication: DIFFUSE LARGE B-CELL LYMPHOMA
     Dosage: FREQUENCY REPORTED AS: DAY 1, 2, 3, 4,5 EVERY 21 DAYS,DATE OF LAST DOSE PRIOR TO SAE: 10 MAY 2009.
     Route: 048
     Dates: start: 20081210
  7. NULYTELY [Concomitant]
     Dosage: DOSAGE REGIMEN: 2 SACHS PRN FORMULATION: SACHS
     Dates: start: 20081128
  8. COLOXYL WITH SENNA [Concomitant]
     Dosage: TOTAL DAILY DOSE: 50/8 MG
     Dates: start: 20081201
  9. LACTULOSE [Concomitant]
     Dosage: TOTAL DAILY DOSE REPORTED AS: 20 MIS
     Dates: start: 20081201
  10. ALLOPURINOL [Concomitant]
     Dates: start: 20081203
  11. URAL [Concomitant]
     Dosage: TOTAL DAILY DOSE REPORTED AS: 4 SACHETS FORMULATION: SACHETS.
     Dates: start: 20081203
  12. NEXIUM [Concomitant]
     Dates: start: 20081126
  13. IMODIUM [Concomitant]
     Dosage: DRUG START DATE REPORTED: 2009.

REACTIONS (2)
  - GASTROINTESTINAL OBSTRUCTION [None]
  - SMALL INTESTINAL OBSTRUCTION [None]
